FAERS Safety Report 8436806-1 (Version None)
Quarter: 2012Q2

REPORT INFORMATION
  Report Type: 
  Country: None (occurrence: None)
  Receive Date: 20120614
  Receipt Date: 20120611
  Transmission Date: 20120825
  Serious: Yes (Hospitalization, Other)
  Sender: FDA-Public Use
  Company Number: CA-ABBOTT-12P-028-0906473-00

PATIENT
  Sex: Female
  Weight: 56.75 kg

DRUGS (1)
  1. HUMIRA [Suspect]
     Indication: CROHN'S DISEASE
     Route: 058
     Dates: start: 20100705, end: 20120201

REACTIONS (5)
  - ABDOMINAL PAIN [None]
  - NAUSEA [None]
  - INTESTINAL OBSTRUCTION [None]
  - GASTROINTESTINAL STOMA COMPLICATION [None]
  - EPISCLERITIS [None]
